FAERS Safety Report 7898613-8 (Version None)
Quarter: 2011Q4

REPORT INFORMATION
  Report Type: 
  Country: None (occurrence: None)
  Receive Date: 20111107
  Receipt Date: 20111107
  Transmission Date: 20120403
  Serious: Yes (Disabling)
  Sender: FDA-Public Use
  Company Number: None

PATIENT
  Age: 12 Year
  Sex: Male
  Weight: 63.1 kg

DRUGS (1)
  1. COUMADIN [Suspect]
     Dosage: 7.5MG
     Route: 048

REACTIONS (1)
  - ALOPECIA [None]
